FAERS Safety Report 7525299-4 (Version None)
Quarter: 2011Q2

REPORT INFORMATION
  Report Type: 
  Country: None (occurrence: None)
  Receive Date: 20110602
  Receipt Date: 20110602
  Transmission Date: 20111010
  Serious: Yes (Life-Threatening)
  Sender: FDA-Public Use
  Company Number: None

PATIENT
  Age: 87 Year
  Sex: Female
  Weight: 56.6996 kg

DRUGS (1)
  1. MIRALAX [Suspect]
     Indication: BOWEL PREPARATION

REACTIONS (2)
  - APPARENT LIFE THREATENING EVENT [None]
  - CARDIAC DISORDER [None]
